FAERS Safety Report 9380330 (Version 2)
Quarter: 2013Q3

REPORT INFORMATION
  Report Type: Spontaneous
  Country: US (occurrence: US)
  Receive Date: 20130702
  Receipt Date: 20130825
  Transmission Date: 20140515
  Serious: No
  Sender: FDA-Public Use
  Company Number: US-009507513-1306USA014354

PATIENT
  Age: 21 Year
  Sex: Female
  Weight: 47.26 kg

DRUGS (3)
  1. NEXPLANON [Suspect]
     Dosage: 1 ROD
     Route: 059
     Dates: start: 20130625, end: 20130625
  2. IMPLANON [Concomitant]
     Dosage: UNK
     Route: 059
     Dates: start: 20130625
  3. IMPLANON [Concomitant]
     Dosage: UNK
     Route: 059
     Dates: end: 20130625

REACTIONS (3)
  - Device difficult to use [Recovered/Resolved]
  - Device expulsion [Recovered/Resolved]
  - No adverse event [Unknown]
